FAERS Safety Report 13164884 (Version 2)
Quarter: 2017Q2

REPORT INFORMATION
  Report Type: Report from Study
  Country: US (occurrence: US)
  Receive Date: 20170130
  Receipt Date: 20170609
  Transmission Date: 20170830
  Serious: Yes (Hospitalization, Other)
  Sender: FDA-Public Use
  Company Number: US-EXELIXIS-XL18417008082

PATIENT
  Age: 63 Year
  Sex: Male
  Weight: 108.7 kg

DRUGS (16)
  1. TRAZODONE [Concomitant]
     Active Substance: TRAZODONE HYDROCHLORIDE
  2. XL184 [Suspect]
     Active Substance: CABOZANTINIB
     Indication: TRANSITIONAL CELL CARCINOMA
     Dosage: 60 MG, QD
     Route: 048
     Dates: start: 20160322, end: 20160718
  3. PREGABALIN. [Concomitant]
     Active Substance: PREGABALIN
  4. SIMVASTATIN. [Concomitant]
     Active Substance: SIMVASTATIN
  5. NIVOLUMAB [Suspect]
     Active Substance: NIVOLUMAB
     Indication: TRANSITIONAL CELL CARCINOMA
     Dosage: 3 MG/KG INTRAVENOUS OVER 60 MINUTES ON DAYS 1 AND 15
     Route: 042
     Dates: start: 20160322, end: 20161114
  6. GLIPIZIDE. [Concomitant]
     Active Substance: GLIPIZIDE
  7. XL184 [Suspect]
     Active Substance: CABOZANTINIB
     Dosage: 20 MG, QD
     Route: 048
     Dates: start: 20161108, end: 20161116
  8. METFORMIN [Concomitant]
     Active Substance: METFORMIN HYDROCHLORIDE
  9. CETIRIZINE HYDROCHLORIDE\PSEUDOEPHEDRINE HYDROCHLORIDE [Concomitant]
     Active Substance: CETIRIZINE HYDROCHLORIDE\PSEUDOEPHEDRINE HYDROCHLORIDE
  10. OMEPRAZOLE. [Concomitant]
     Active Substance: OMEPRAZOLE
  11. XL184 [Suspect]
     Active Substance: CABOZANTINIB
     Dosage: 20 MG, QD
     Route: 048
     Dates: start: 20160719, end: 20161017
  12. ASPIRIN. [Concomitant]
     Active Substance: ASPIRIN
  13. MELATONIN [Concomitant]
     Active Substance: MELATONIN
  14. SERTRALINE [Concomitant]
     Active Substance: SERTRALINE HYDROCHLORIDE
  15. INSULIN [Concomitant]
     Active Substance: INSULIN NOS
  16. OXYCODONE [Concomitant]
     Active Substance: OXYCODONE

REACTIONS (5)
  - Urinary tract infection [Recovering/Resolving]
  - Pyrexia [Recovering/Resolving]
  - Chills [Recovering/Resolving]
  - Vomiting [Recovering/Resolving]
  - Bacteraemia [Unknown]

NARRATIVE: CASE EVENT DATE: 20161117
